FAERS Safety Report 5777438-3 (Version None)
Quarter: 2008Q2

REPORT INFORMATION
  Report Type: 
  Country: None (occurrence: None)
  Receive Date: 20080618
  Receipt Date: 20080610
  Transmission Date: 20081010
  Serious: Yes (Hospitalization)
  Sender: FDA-Public Use
  Company Number: US-GILEAD-2008-0016850

PATIENT
  Sex: Female
  Weight: 26.332 kg

DRUGS (19)
  1. LETAIRIS [Suspect]
     Indication: PULMONARY ARTERIAL HYPERTENSION
     Route: 048
     Dates: start: 20070927
  2. COZAAR [Concomitant]
     Route: 048
  3. PREVACID [Concomitant]
     Route: 048
  4. ENALAPRIL MALEATE [Concomitant]
     Route: 048
  5. REVATIO [Concomitant]
     Route: 048
  6. PROCARDIA XL [Concomitant]
     Route: 048
  7. COUMADIN [Concomitant]
     Route: 048
  8. CELEXA [Concomitant]
     Route: 048
  9. VENTAVIS [Concomitant]
     Route: 055
  10. METHYLPREDNISOLONE [Concomitant]
     Route: 042
  11. NAPROXEN [Concomitant]
     Route: 048
  12. IRON [Concomitant]
     Route: 048
  13. MULTIPLE VITAMIN [Concomitant]
     Route: 048
  14. TYLENOL [Concomitant]
     Route: 048
  15. PLAQUENIL [Concomitant]
     Route: 048
  16. CALCITRIOL [Concomitant]
     Route: 048
  17. PREDNISONE TAB [Concomitant]
     Route: 048
  18. NORVASC [Concomitant]
     Route: 048
  19. CALCIUM [Concomitant]
     Route: 048

REACTIONS (1)
  - INFECTION [None]
